FAERS Safety Report 9958603 (Version 1)
Quarter: 2014Q1

REPORT INFORMATION
  Report Type: Report from Study
  Country: US (occurrence: US)
  Receive Date: 20140305
  Receipt Date: 20140305
  Transmission Date: 20141002
  Serious: Yes (Other)
  Sender: FDA-Public Use
  Company Number: US-ROCHE-1346942

PATIENT
  Sex: Female

DRUGS (6)
  1. LUCENTIS [Suspect]
     Indication: AGE-RELATED MACULAR DEGENERATION
     Dosage: X 3 MONTHS THEN QUARTERLY
     Route: 050
  2. AVASTIN [Suspect]
     Indication: PRODUCT USED FOR UNKNOWN INDICATION
     Dosage: OD
     Route: 065
     Dates: start: 20110914
  3. HCTZ [Concomitant]
     Route: 065
  4. ERYTHROMYCIN [Concomitant]
     Dosage: X 1 IN OFFICE
     Route: 065
  5. VIGAMOX [Concomitant]
     Dosage: X 3 DAYS
     Route: 065
  6. KETOROLAC [Concomitant]
     Dosage: OD
     Route: 065

REACTIONS (12)
  - Iridocyclitis [Unknown]
  - Cystoid macular oedema [Unknown]
  - Meibomian gland dysfunction [Unknown]
  - Cataract [Unknown]
  - Refraction disorder [Unknown]
  - Borderline glaucoma [Unknown]
  - Confusional state [Unknown]
  - Cataract nuclear [Unknown]
  - Accommodation disorder [Unknown]
  - Cataract subcapsular [Unknown]
  - Pupillary light reflex tests abnormal [Unknown]
  - Off label use [Unknown]
